FAERS Safety Report 14303038 (Version 2)
Quarter: 2017Q4

REPORT INFORMATION
  Report Type: Report from Study
  Country: CO (occurrence: CO)
  Receive Date: 20171219
  Receipt Date: 20171227
  Transmission Date: 20180321
  Serious: No
  Sender: FDA-Public Use
  Company Number: CO-ASTELLAS-2017US054561

PATIENT
  Sex: Male

DRUGS (1)
  1. ERLOTINIB [Suspect]
     Active Substance: ERLOTINIB
     Indication: LUNG NEOPLASM MALIGNANT
     Route: 048
     Dates: start: 20170419

REACTIONS (2)
  - Conjunctivitis [Recovering/Resolving]
  - Rash pustular [Recovered/Resolved]

NARRATIVE: CASE EVENT DATE: 2017
